FAERS Safety Report 14454576 (Version 1)
Quarter: 2018Q1

REPORT INFORMATION
  Report Type: Spontaneous
  Country: US (occurrence: US)
  Receive Date: 20180129
  Receipt Date: 20180129
  Transmission Date: 20180509
  Serious: No
  Sender: FDA-Public Use
  Company Number: US-PERRIGO-17US025434

PATIENT
  Age: 45 Year
  Sex: Female
  Weight: 54.42 kg

DRUGS (1)
  1. TRETINOIN. [Suspect]
     Active Substance: TRETINOIN
     Indication: SKIN HYPERPIGMENTATION
     Dosage: UNK, SINGLE
     Route: 061
     Dates: start: 201707, end: 201707

REACTIONS (4)
  - Application site erythema [Recovering/Resolving]
  - Application site swelling [Recovered/Resolved]
  - Application site exfoliation [Recovered/Resolved]
  - Off label use [Recovered/Resolved]

NARRATIVE: CASE EVENT DATE: 201707
